FAERS Safety Report 24843050 (Version 1)
Quarter: 2025Q1

REPORT INFORMATION
  Report Type: Report from Study
  Country: US (occurrence: US)
  Receive Date: 20250115
  Receipt Date: 20250115
  Transmission Date: 20250408
  Serious: No
  Sender: HRA PHARMA
  Company Number: US-ORG100014127-2024000072

PATIENT
  Age: 58 Year
  Sex: Male

DRUGS (6)
  1. LYSODREN [Suspect]
     Active Substance: MITOTANE
     Indication: Adrenal gland cancer
     Dosage: TWICE DAILY
     Route: 048
     Dates: start: 20240222
  2. LYSODREN [Suspect]
     Active Substance: MITOTANE
     Indication: Adrenal gland cancer
     Dosage: 4 TABLETS TWICE DAILY
     Route: 048
     Dates: start: 2024
  3. Hydrocortisone 10 mg tablets [Concomitant]
     Indication: Product used for unknown indication
  4. Iron 325 mg tablets [Concomitant]
     Indication: Product used for unknown indication
  5. Vitamin C 1000 mg Tablets [Concomitant]
     Indication: Product used for unknown indication
  6. Vitamin D 1000 unit capsules [Concomitant]
     Indication: Product used for unknown indication

REACTIONS (4)
  - Rhinorrhoea [Not Recovered/Not Resolved]
  - Adverse event [Not Recovered/Not Resolved]
  - Nausea [Not Recovered/Not Resolved]
  - Fatigue [Not Recovered/Not Resolved]

NARRATIVE: CASE EVENT DATE: 20240222
